FAERS Safety Report 13463992 (Version 1)
Quarter: 2017Q2

REPORT INFORMATION
  Report Type: Spontaneous
  Country: US (occurrence: US)
  Receive Date: 20170420
  Receipt Date: 20170420
  Transmission Date: 20170830
  Serious: Yes (Other)
  Sender: FDA-Public Use
  Company Number: US-ROCHE-717484

PATIENT
  Age: 19 Year
  Sex: Female
  Weight: 57.2 kg

DRUGS (3)
  1. DOXYCYCLINE. [Concomitant]
     Active Substance: DOXYCYCLINE
     Route: 065
  2. ACCUTANE [Suspect]
     Active Substance: ISOTRETINOIN
     Indication: ACNE
     Route: 065
     Dates: start: 19970620, end: 19971111
  3. DIFFERIN GEL [Concomitant]
     Active Substance: ADAPALENE
     Route: 065

REACTIONS (8)
  - Cheilitis [Unknown]
  - Depression [Unknown]
  - Dry eye [Unknown]
  - Eczema [Unknown]
  - Proctitis [Unknown]
  - Inflammatory bowel disease [Unknown]
  - Colitis ulcerative [Unknown]
  - Dry skin [Unknown]

NARRATIVE: CASE EVENT DATE: 19970815
